FAERS Safety Report 15099158 (Version 1)
Quarter: 2018Q4

REPORT INFORMATION
  Report Type: Spontaneous
  Country: US (occurrence: US)
  Receive Date: 20180702
  Receipt Date: 20180702
  Transmission Date: 20190204
  Serious: No
  Sender: FDA-Public Use
  Company Number: US-TEVA-2018-US-916382

PATIENT
  Sex: Male

DRUGS (1)
  1. ANTIBPRAMOONT-A (NEOMYCIN\POLYMYXIN B) [Suspect]
     Active Substance: NEOMYCIN\POLYMYXIN B
     Indication: WOUND INFECTION
     Route: 065

REACTIONS (2)
  - Expired product administered [Unknown]
  - Impaired healing [Unknown]
